FAERS Safety Report 8297538-6 (Version None)
Quarter: 2012Q2

REPORT INFORMATION
  Report Type: 
  Country: None (occurrence: None)
  Receive Date: 20120419
  Receipt Date: 20120411
  Transmission Date: 20120825
  Serious: Yes (Other)
  Sender: FDA-Public Use
  Company Number: PHHY2012CA032124

PATIENT
  Age: 84 Year
  Sex: Female

DRUGS (1)
  1. SANDOSTATIN LAR [Suspect]

REACTIONS (4)
  - HOT FLUSH [None]
  - INTERNATIONAL NORMALISED RATIO INCREASED [None]
  - HYPERTENSION [None]
  - FAECES DISCOLOURED [None]
